FAERS Safety Report 5845279-4 (Version None)
Quarter: 2008Q3

REPORT INFORMATION
  Report Type: 
  Country: None (occurrence: None)
  Receive Date: 20080731
  Receipt Date: 20080516
  Transmission Date: 20090109
  Serious: No
  Sender: FDA-Public Use
  Company Number: US200804006190

PATIENT
  Age: 70 Year
  Sex: Male

DRUGS (6)
  1. BYETTA [Suspect]
     Indication: INSULIN-REQUIRING TYPE 2 DIABETES MELLITUS
     Dosage: 5 UG, 2/D, SUBCUTANEOUS
     Route: 058
     Dates: start: 20080418
  2. GLYBURIDE [Concomitant]
  3. DRUG USED IN DIABETES [Concomitant]
  4. PRANDIN /USA/ (REPAGLINIDE) [Concomitant]
  5. LANTUS [Concomitant]
  6. METFORMIN HCL [Concomitant]

REACTIONS (6)
  - BLOOD GLUCOSE DECREASED [None]
  - BLOOD GLUCOSE INCREASED [None]
  - DIZZINESS [None]
  - NERVOUSNESS [None]
  - PANIC REACTION [None]
  - TREMOR [None]
